FAERS Safety Report 6841719-2 (Version None)
Quarter: 2010Q3

REPORT INFORMATION
  Report Type: 
  Country: None (occurrence: None)
  Receive Date: 20100714
  Receipt Date: 20070711
  Transmission Date: 20110219
  Serious: No
  Sender: FDA-Public Use
  Company Number: US-PFIZER INC-2007059159

PATIENT
  Sex: Female
  Weight: 59.545 kg

DRUGS (5)
  1. CHANTIX [Suspect]
     Indication: SMOKING CESSATION THERAPY
     Dates: start: 20070101, end: 20070101
  2. ATENOLOL [Concomitant]
  3. SYNTHROID [Concomitant]
  4. NORVASC [Concomitant]
  5. ACETYLSALICYLIC ACID [Concomitant]

REACTIONS (1)
  - MUSCLE SPASMS [None]
